FAERS Safety Report 8283473-6 (Version None)
Quarter: 2012Q2

REPORT INFORMATION
  Report Type: 
  Country: None (occurrence: None)
  Receive Date: 20120413
  Receipt Date: 20120328
  Transmission Date: 20120825
  Serious: Yes (Other)
  Sender: FDA-Public Use
  Company Number: CHPA2012US006246

PATIENT
  Sex: Female

DRUGS (9)
  1. METFORMIN HCL [Concomitant]
  2. PRAVACHOL [Concomitant]
  3. ENTERIC ASPIRIN [Concomitant]
  4. GLYBURIDE [Concomitant]
  5. PRILOSEC [Concomitant]
  6. MAALOX ANTACID/ANTIGAS MAX LIQ [Suspect]
     Indication: CONSTIPATION
     Dosage: 2 TSP, UNK
     Route: 048
     Dates: start: 20110101
  7. ZETIA [Concomitant]
  8. NORPACE [Concomitant]
  9. CARDIZEM [Concomitant]

REACTIONS (3)
  - DEHYDRATION [None]
  - CONSTIPATION [None]
  - DRUG INEFFECTIVE FOR UNAPPROVED INDICATION [None]
